FAERS Safety Report 5303179-2 (Version None)
Quarter: 2007Q2

REPORT INFORMATION
  Report Type: 
  Country: None (occurrence: None)
  Receive Date: 20070420
  Receipt Date: 20070411
  Transmission Date: 20071010
  Serious: Yes (Hospitalization)
  Sender: FDA-Public Use
  Company Number: FR-ROCHE-417026

PATIENT
  Age: 41 Year
  Sex: Male

DRUGS (31)
  1. DACLIZUMAB [Suspect]
     Route: 042
     Dates: start: 20041223, end: 20041223
  2. DACLIZUMAB [Suspect]
     Route: 042
     Dates: start: 20041229, end: 20041229
  3. MYCOPHENOLATE MOFETIL [Suspect]
     Route: 042
     Dates: start: 20041223, end: 20050124
  4. MYCOPHENOLATE MOFETIL [Suspect]
     Route: 048
     Dates: start: 20050125, end: 20050608
  5. MYCOPHENOLATE MOFETIL [Suspect]
     Route: 048
     Dates: start: 20050825, end: 20051207
  6. TACROLIMUS [Suspect]
     Dosage: ADJUSTMENT TO REACH PREDEFINED TARGET LEVELS.
     Route: 048
     Dates: start: 20041227, end: 20060112
  7. METHYLPREDNISOLONE 16MG TAB [Suspect]
     Dosage: TAPERED ACCORDING TO LOCAL PROTOCOL.
     Route: 065
     Dates: start: 20041223, end: 20041227
  8. PREDNISONE TAB [Suspect]
     Dosage: TAPERED ACCORDING TO LOCAL PROTOCOL.
     Route: 065
     Dates: start: 20041228, end: 20060112
  9. NEFOPAM [Concomitant]
     Indication: PROPHYLAXIS
     Dates: start: 20041222, end: 20050107
  10. TAZOCILLINE [Concomitant]
     Indication: PROPHYLAXIS
     Dates: start: 20041222, end: 20041224
  11. PARACETAMOL [Concomitant]
     Indication: PROPHYLAXIS
     Dates: start: 20041222, end: 20050110
  12. OMEPRAZOLE [Concomitant]
     Indication: PROPHYLAXIS
     Dates: start: 20041222, end: 20050124
  13. NICARDIPINE HYDROCHLORIDE [Concomitant]
     Indication: HYPERTENSION
     Dates: start: 20041222, end: 20041223
  14. MORPHINE [Concomitant]
     Indication: PROPHYLAXIS
     Dates: start: 20041223, end: 20050105
  15. URAPIDIL [Concomitant]
     Indication: HYPERTENSION
     Dates: start: 20041225, end: 20050105
  16. AMLODIPINE [Concomitant]
     Indication: HYPERTENSION
     Dates: start: 20041225
  17. INSULINE [Concomitant]
     Dates: start: 20041224
  18. ACEBUTOLOL [Concomitant]
     Indication: HYPERTENSION
     Dates: start: 20041228
  19. FUROSEMIDE [Concomitant]
     Indication: PROPHYLAXIS
     Dates: start: 20041224, end: 20041226
  20. BROMAZEPAM [Concomitant]
     Indication: INSOMNIA
     Dates: start: 20041227, end: 20050105
  21. BACTRIM [Concomitant]
     Indication: PROPHYLAXIS
     Dates: start: 20050105, end: 20050608
  22. ALFUZOSINE [Concomitant]
     Dates: start: 20050113
  23. RIBAVIRIN [Concomitant]
     Indication: HEPATITIS C
     Dates: start: 20041226
  24. INTERFERON ALPHA [Concomitant]
     Indication: HEPATITIS C
     Dates: start: 20050113
  25. EPOETIN BETA [Concomitant]
     Dates: start: 20050112
  26. TRANSFUSION [Concomitant]
     Dosage: RED CELLS BLOOD TRANSFUSION.
     Dates: start: 20050104, end: 20050114
  27. AMOXICILLIN [Concomitant]
     Indication: PROPHYLAXIS
     Dates: start: 20050109, end: 20050115
  28. LENOGRASTIM [Concomitant]
     Dates: start: 20050322, end: 20050727
  29. GANCICLOVIR [Concomitant]
     Dates: start: 20050615, end: 20050707
  30. MANTADIX [Concomitant]
     Dates: start: 20051124
  31. TRIATEC [Concomitant]
     Indication: HYPERTENSION
     Dates: start: 20050215

REACTIONS (2)
  - ANAEMIA [None]
  - CYTOMEGALOVIRUS INFECTION [None]
